FAERS Safety Report 7569987-2 (Version None)
Quarter: 2011Q2

REPORT INFORMATION
  Report Type: 
  Country: None (occurrence: None)
  Receive Date: 20110622
  Receipt Date: 20110622
  Transmission Date: 20111010
  Serious: Yes (Life-Threatening, Hospitalization)
  Sender: FDA-Public Use
  Company Number: None

PATIENT
  Age: 66 Year
  Sex: Female
  Weight: 77.5651 kg

DRUGS (1)
  1. SUTENT [Suspect]
     Indication: HEPATIC NEOPLASM
     Dosage: 1 TAB DAILY PO
     Route: 048
     Dates: start: 20110514, end: 20110527

REACTIONS (1)
  - HEPATIC FAILURE [None]
